FAERS Safety Report 19268612 (Version 2)
Quarter: 2021Q2

REPORT INFORMATION
  Report Type: Report from Study
  Country: US (occurrence: US)
  Receive Date: 20210518
  Receipt Date: 20210520
  Transmission Date: 20210717
  Serious: Yes (Death, Hospitalization, Other)
  Sender: FDA-Public Use
  Company Number: US-GILEAD-2021-0530846

PATIENT
  Age: 41 Year
  Sex: Female
  Weight: 62.9 kg

DRUGS (15)
  1. AMBRISENTAN [Concomitant]
     Active Substance: AMBRISENTAN
  2. NITRIC OXIDE. [Concomitant]
     Active Substance: NITRIC OXIDE
  3. INSULIN [Concomitant]
     Active Substance: INSULIN NOS
  4. MEROPENEM. [Concomitant]
     Active Substance: MEROPENEM
  5. NOREPINEPHRINE. [Concomitant]
     Active Substance: NOREPINEPHRINE
  6. PRISMASATE BK0/3.5 [Concomitant]
  7. VANCOMYCIN [Concomitant]
     Active Substance: VANCOMYCIN
  8. AMBRISENTAN [Suspect]
     Active Substance: AMBRISENTAN
     Indication: PULMONARY ARTERIAL HYPERTENSION
     Dosage: 5 MG, QD
     Route: 048
     Dates: start: 20190627
  9. FENTANYL. [Concomitant]
     Active Substance: FENTANYL
  10. MIDAZOLAM. [Concomitant]
     Active Substance: MIDAZOLAM
  11. TADALAFIL. [Concomitant]
     Active Substance: TADALAFIL
  12. DOBUTAMINE [Concomitant]
     Active Substance: DOBUTAMINE HYDROCHLORIDE
  13. REMODULIN [Concomitant]
     Active Substance: TREPROSTINIL
  14. PANTOPRAZOLE [Concomitant]
     Active Substance: PANTOPRAZOLE
  15. VASOPRESSIN. [Concomitant]
     Active Substance: VASOPRESSIN

REACTIONS (2)
  - Pulmonary hypertensive crisis [Fatal]
  - Vascular device infection [Fatal]

NARRATIVE: CASE EVENT DATE: 20210422
